FAERS Safety Report 5372101-5 (Version None)
Quarter: 2007Q2

REPORT INFORMATION
  Report Type: 
  Country: None (occurrence: None)
  Receive Date: 20070627
  Receipt Date: 20070618
  Transmission Date: 20071010
  Serious: Yes (Hospitalization, Other)
  Sender: FDA-Public Use
  Company Number: JP-MERCK-0705USA05714

PATIENT
  Sex: Female

DRUGS (7)
  1. ZOCOR [Suspect]
     Indication: HYPERLIPIDAEMIA
     Route: 048
     Dates: start: 20021101
  2. GLYCYRON [Concomitant]
     Route: 065
  3. BEZATOL SR [Concomitant]
     Route: 048
  4. LEVOTHYROXINE SODIUM [Concomitant]
     Indication: HYPOTHYROIDISM
     Route: 048
     Dates: start: 19930101
  5. SOLDEM 1 [Concomitant]
     Route: 041
  6. NEO-MINOPHAGEN C [Concomitant]
     Route: 042
  7. TROXIPIDE [Concomitant]
     Route: 048

REACTIONS (6)
  - DIARRHOEA [None]
  - HEPATIC PAIN [None]
  - HEPATITIS ACUTE [None]
  - HEPATOCELLULAR DAMAGE [None]
  - NEPHROLITHIASIS [None]
  - THYROID NEOPLASM [None]
